FAERS Safety Report 26006637 (Version 1)
Quarter: 2025Q4

REPORT INFORMATION
  Report Type: Spontaneous
  Country: GB (occurrence: GB)
  Receive Date: 20251106
  Receipt Date: 20251106
  Transmission Date: 20260117
  Serious: Yes (Life-Threatening, Hospitalization, Other)
  Sender: PHARMACOSMOS A/S
  Company Number: None

PATIENT
  Sex: Male

DRUGS (3)
  1. FERRIC DERISOMALTOSE [Suspect]
     Active Substance: FERRIC DERISOMALTOSE
     Indication: Iron deficiency anaemia
     Dates: start: 20251022, end: 20251022
  2. LEVOTHYROXINE [Concomitant]
     Active Substance: LEVOTHYROXINE
  3. FUROSEMIDE [Concomitant]
     Active Substance: FUROSEMIDE

REACTIONS (3)
  - Colitis [Unknown]
  - Hypotension [Unknown]
  - Vasospasm [Recovered/Resolved with Sequelae]

NARRATIVE: CASE EVENT DATE: 20251022
